FAERS Safety Report 8072512-3 (Version None)
Quarter: 2012Q1

REPORT INFORMATION
  Report Type: 
  Country: None (occurrence: None)
  Receive Date: 20120126
  Receipt Date: 20120124
  Transmission Date: 20120608
  Serious: Yes (Other)
  Sender: FDA-Public Use
  Company Number: US-PFIZER INC-2012019934

PATIENT
  Sex: Female
  Weight: 72.562 kg

DRUGS (5)
  1. SEROQUEL [Concomitant]
     Dosage: UNK
  2. PRISTIQ [Suspect]
     Indication: BIPOLAR DISORDER
     Dosage: 50 MG, 1X/DAY
     Route: 048
     Dates: start: 20060101
  3. EFFEXOR [Concomitant]
     Dosage: 300 MG, 1X/DAY
  4. ALPRAZOLAM [Concomitant]
     Dosage: 0.5 MG, 4X/DAY
  5. LAMICTAL [Concomitant]
     Dosage: 300 MG, 1X/DAY

REACTIONS (4)
  - CARPAL TUNNEL SYNDROME [None]
  - PANIC ATTACK [None]
  - SENSORY LOSS [None]
  - DEPRESSION [None]
